FAERS Safety Report 8587569-0 (Version None)
Quarter: 2012Q3

REPORT INFORMATION
  Report Type: 
  Country: None (occurrence: None)
  Receive Date: 20120810
  Receipt Date: 20120806
  Transmission Date: 20120928
  Serious: Yes (Hospitalization, Other)
  Sender: FDA-Public Use
  Company Number: BE-AMGEN-BELSP2012044851

PATIENT
  Age: 71 Year
  Sex: Male
  Weight: 65 kg

DRUGS (4)
  1. XGEVA [Suspect]
     Indication: METASTASES TO BONE
     Dosage: 120 MG, ONE TIME DOSE
     Route: 058
     Dates: start: 20120703
  2. CALCIUM GLUCONATE [Concomitant]
     Indication: HYPOCALCAEMIA
     Dosage: UNK
  3. NATRIUM BICARBONATE ORION [Concomitant]
  4. KAOPECTATE                         /00139305/ [Concomitant]

REACTIONS (5)
  - HYPOCALCAEMIA [None]
  - TUMOUR LYSIS SYNDROME [None]
  - BLOOD LACTATE DEHYDROGENASE INCREASED [None]
  - ELECTROCARDIOGRAM QT PROLONGED [None]
  - BLOOD POTASSIUM INCREASED [None]
